FAERS Safety Report 9498322 (Version 1)
Quarter: 2013Q3

REPORT INFORMATION
  Report Type: Spontaneous
  Country: US (occurrence: None)
  Receive Date: 20130903
  Receipt Date: 20130903
  Transmission Date: 20140515
  Serious: Yes (Hospitalization)
  Sender: FDA-Public Use
  Company Number: None

PATIENT
  Age: 64 Year
  Sex: Female
  Weight: 78.02 kg

DRUGS (2)
  1. RILOTUMUMAB [Suspect]
     Indication: LUNG NEOPLASM MALIGNANT
     Dosage: 15 MG/KG EVERY 21 DAYS INTRAVENOUS
     Route: 042
     Dates: start: 20130712, end: 20130802
  2. TARVCEVA [Concomitant]

REACTIONS (5)
  - Fall [None]
  - Deep vein thrombosis [None]
  - Metastases to central nervous system [None]
  - Neoplasm [None]
  - Drug ineffective [None]
